FAERS Safety Report 6649037-2 (Version None)
Quarter: 2010Q1

REPORT INFORMATION
  Report Type: 
  Country: None (occurrence: None)
  Receive Date: 20100324
  Receipt Date: 20100316
  Transmission Date: 20100710
  Serious: Yes (Other)
  Sender: FDA-Public Use
  Company Number: IE-JNJCH-2010006732

PATIENT
  Age: 21 Year
  Sex: Female

DRUGS (1)
  1. NICORETTE INVISI 15MG PATCH [Suspect]
     Indication: SMOKING CESSATION THERAPY
     Route: 062

REACTIONS (7)
  - DIZZINESS [None]
  - HYPERHIDROSIS [None]
  - LOSS OF CONSCIOUSNESS [None]
  - MALAISE [None]
  - PALLOR [None]
  - SYNCOPE [None]
  - TREMOR [None]
